FAERS Safety Report 18586448 (Version 1)
Quarter: 2020Q4

REPORT INFORMATION
  Report Type: Other
  Country: US (occurrence: US)
  Receive Date: 20201207
  Receipt Date: 20201207
  Transmission Date: 20210114
  Serious: No
  Sender: FDA-Public Use
  Company Number: US-NOVAPHARM-000001

PATIENT
  Age: 40 Year
  Sex: Male
  Weight: 114 kg

DRUGS (1)
  1. SPY-MIS KIT [Suspect]
     Active Substance: INDOCYANINE GREEN\WATER
     Route: 040

REACTIONS (1)
  - Urticaria [Recovered/Resolved]

NARRATIVE: CASE EVENT DATE: 20200717
